FAERS Safety Report 7094983-1 (Version None)
Quarter: 2010Q4

REPORT INFORMATION
  Report Type: 
  Country: None (occurrence: None)
  Receive Date: 20101111
  Receipt Date: 20101102
  Transmission Date: 20110411
  Serious: No
  Sender: FDA-Public Use
  Company Number: US-BIOGENIDEC-2010BI038699

PATIENT
  Sex: Female

DRUGS (1)
  1. TYSABRI [Suspect]
     Indication: MULTIPLE SCLEROSIS
     Route: 042
     Dates: start: 20090916

REACTIONS (6)
  - COGNITIVE DISORDER [None]
  - FALL [None]
  - FATIGUE [None]
  - PAIN IN EXTREMITY [None]
  - URINARY TRACT INFECTION [None]
  - WRIST FRACTURE [None]
